FAERS Safety Report 24545932 (Version 2)
Quarter: 2024Q4

REPORT INFORMATION
  Report Type: Spontaneous
  Country: US (occurrence: US)
  Receive Date: 20241024
  Receipt Date: 20241118
  Transmission Date: 20250115
  Serious: Yes (Other)
  Sender: NOVO NORDISK
  Company Number: US-NOVOPROD-1301887

PATIENT
  Age: 57 Year
  Sex: Female
  Weight: 59.41 kg

DRUGS (2)
  1. RYBELSUS [Suspect]
     Active Substance: SEMAGLUTIDE
     Dosage: 14 MG
     Route: 048
     Dates: start: 20240702, end: 20240826
  2. RYBELSUS [Suspect]
     Active Substance: SEMAGLUTIDE
     Indication: Type 2 diabetes mellitus
     Dosage: 7 MG
     Route: 048
     Dates: start: 202109

REACTIONS (7)
  - Gastrointestinal haemorrhage [Recovered/Resolved]
  - Melaena [Recovered/Resolved]
  - Anaemia [Unknown]
  - Dizziness [Recovered/Resolved]
  - Glycosylated haemoglobin increased [Unknown]
  - Hypotension [Unknown]
  - Cold sweat [Unknown]

NARRATIVE: CASE EVENT DATE: 20240820
